FAERS Safety Report 7029568-6 (Version None)
Quarter: 2010Q4

REPORT INFORMATION
  Report Type: 
  Country: None (occurrence: None)
  Receive Date: 20101001
  Receipt Date: 20100923
  Transmission Date: 20110411
  Serious: Yes (Disabling, Other)
  Sender: FDA-Public Use
  Company Number: CL-224-2010

PATIENT
  Age: 85 Year
  Sex: Male

DRUGS (3)
  1. AMIODARONE HCL [Suspect]
     Indication: ATRIAL FIBRILLATION
     Dosage: 200 MG ONCE DAILY, ORAL
     Route: 048
  2. ASPIRIN [Concomitant]
  3. INHALED BRNCHODILATORS [Concomitant]

REACTIONS (6)
  - INTERMITTENT CLAUDICATION [None]
  - MYOPATHY [None]
  - NEUROPATHIC ARTHROPATHY [None]
  - NEUROPATHY PERIPHERAL [None]
  - SKIN ULCER [None]
  - WOUND [None]
